FAERS Safety Report 5123298-3 (Version None)
Quarter: 2006Q4

REPORT INFORMATION
  Report Type: 
  Country: None (occurrence: None)
  Receive Date: 20061009
  Receipt Date: 20060929
  Transmission Date: 20070319
  Serious: Yes (Disabling)
  Sender: FDA-Public Use
  Company Number: FR-GLAXOSMITHKLINE-B0441187A

PATIENT
  Age: 47 Year
  Sex: Female

DRUGS (3)
  1. ARIXTRA [Suspect]
     Indication: DEEP VEIN THROMBOSIS
     Dosage: 7.5MG PER DAY
     Route: 058
     Dates: start: 20060925
  2. BEVACIZUMAB [Concomitant]
     Indication: BREAST CANCER
     Dates: start: 20060918
  3. UNKNOWN CANCER THERAPY DRUG [Concomitant]
     Indication: BREAST CANCER
     Dates: start: 20060918

REACTIONS (2)
  - ASTHENIA [None]
  - DIZZINESS [None]
